FAERS Safety Report 6483973-5 (Version None)
Quarter: 2009Q4

REPORT INFORMATION
  Report Type: 
  Country: None (occurrence: None)
  Receive Date: 20091209
  Receipt Date: 20091208
  Transmission Date: 20100525
  Serious: Yes (Hospitalization)
  Sender: FDA-Public Use
  Company Number: JP-BAYER-200913563BYL

PATIENT
  Age: 75 Year
  Sex: Female
  Weight: 66 kg

DRUGS (2)
  1. NEXAVAR [Suspect]
     Indication: HEPATIC NEOPLASM MALIGNANT
     Dosage: TOTAL DAILY DOSE: 800 MG  UNIT DOSE: 200 MG
     Route: 048
     Dates: start: 20090716, end: 20090925
  2. ADALAT [Concomitant]
     Dosage: SINCE BEFORE ADMINISTRAITON
     Route: 048

REACTIONS (3)
  - DYSGEUSIA [None]
  - HYPERTENSION [None]
  - NAUSEA [None]
